FAERS Safety Report 14970356 (Version 1)
Quarter: 2018Q2

REPORT INFORMATION
  Report Type: Spontaneous
  Country: US (occurrence: US)
  Receive Date: 20180604
  Receipt Date: 20180604
  Transmission Date: 20180711
  Serious: No
  Sender: FDA-Public Use
  Company Number: US-ALLERGAN-1769609US

PATIENT
  Sex: Female

DRUGS (1)
  1. KYBELLA [Suspect]
     Active Substance: DEOXYCHOLIC ACID
     Indication: FAT TISSUE INCREASED
     Dosage: 4 UNK, UNK
     Route: 058
     Dates: start: 20171118, end: 20171118

REACTIONS (6)
  - Pallor [Recovered/Resolved]
  - Ulcer [Recovered/Resolved]
  - Administration site extravasation [Recovered/Resolved]
  - Pain [Recovered/Resolved]
  - Scab [Recovered/Resolved]
  - Skin ulcer [Recovered/Resolved]
